FAERS Safety Report 6509406-8 (Version None)
Quarter: 2009Q4

REPORT INFORMATION
  Report Type: 
  Country: None (occurrence: None)
  Receive Date: 20091210
  Receipt Date: 20091006
  Transmission Date: 20100525
  Serious: Yes (Other)
  Sender: FDA-Public Use
  Company Number: CIP08002077

PATIENT
  Sex: Female

DRUGS (35)
  1. ACTONEL [Suspect]
     Dosage: 35 MG ONCE WEEKLY, ORAL
     Route: 048
     Dates: start: 20050405, end: 20070101
  2. CADUET [Concomitant]
  3. TOPROL-XL [Concomitant]
  4. DIPYRIDAMOLE [Concomitant]
  5. TRIAMTERENE AND HYDROCHLOROTHIAZIDE [Concomitant]
  6. ASPIRIN [Concomitant]
  7. TEMAZEPAM (TEMAZAPAM) [Concomitant]
  8. MULTIVITAMIN /00097801/ (ASCORBIC ACID, CALCIUM PANTOTHENATE, ERGOCALC [Concomitant]
  9. CALTRATE +D (CALCIUM CARBONATE, VITAMIN D NOS) [Concomitant]
  10. CITRACAL + D (CALCIUM CITRATE, ERGOCALCIFEROL) [Concomitant]
  11. VITAMIN E /00110501/ (TOCOPHEROL) [Concomitant]
  12. VITAMIN C /00008001/ (ASCORBIC ACID) [Concomitant]
  13. FOLIC ACID [Concomitant]
  14. VITAMIN B6 [Concomitant]
  15. VITAMIN B12 /00056201/ (CYANOCOBALAMIN) [Concomitant]
  16. MOVE FREE (CHONDOITIN SULFATE, GLUCOSAMINE) [Concomitant]
  17. AMLODIPINE [Concomitant]
  18. SIMVASTATIN [Concomitant]
  19. ZOLPIDEM [Concomitant]
  20. EVISTA /01303201/ (RALOXIFENE) [Concomitant]
  21. FUROSEMIDE [Concomitant]
  22. CYCLOBENZAPRINE [Concomitant]
  23. GABAPENTIN [Concomitant]
  24. ALBUTEROL /00139601/ (SALBUTAMOL) [Concomitant]
  25. NAPROXEN [Concomitant]
  26. ULTRAM [Concomitant]
  27. OXYCODONE W/PARACETAMOL (OXYCODONE, PARACETAMOL) [Concomitant]
  28. PENTOXIFYLLINE [Concomitant]
  29. AMOXICILLIN [Concomitant]
  30. MENEST /00073001/ (ESTROGENS CONJUGATED) [Concomitant]
  31. TELMISARTAN [Concomitant]
  32. FLUVASTATIN [Concomitant]
  33. BAYCOL [Concomitant]
  34. GARLIC /01570501/ (ALLIUM SATIVUM) [Concomitant]
  35. TRIAMCINOLONE [Concomitant]

REACTIONS (10)
  - ACTINOMYCOSIS [None]
  - DENTAL CARIES [None]
  - DEVICE FAILURE [None]
  - IMPAIRED HEALING [None]
  - JAW DISORDER [None]
  - MASTICATION DISORDER [None]
  - OSTEONECROSIS [None]
  - STOMATITIS [None]
  - TOOTH DISORDER [None]
  - TOOTHACHE [None]
